FAERS Safety Report 4421218-8 (Version None)
Quarter: 2004Q3

REPORT INFORMATION
  Report Type: 
  Country: None (occurrence: None)
  Receive Date: 20040804
  Receipt Date: 20040708
  Transmission Date: 20050211
  Serious: Yes (Hospitalization)
  Sender: FDA-Public Use
  Company Number: GBS040715212

PATIENT
  Age: 32 Year
  Sex: Male

DRUGS (4)
  1. OLANZAPINE [Suspect]
     Indication: PSYCHOTIC DISORDER
     Dosage: 10 MG
     Dates: start: 20040620, end: 20040620
  2. OLANZAPINE [Suspect]
     Dates: start: 20040624, end: 20040625
  3. ZOLPIDEM TARTRATE [Concomitant]
  4. LORAZEPAM [Concomitant]

REACTIONS (2)
  - BLOOD ALBUMIN INCREASED [None]
  - HEPATITIS ACUTE [None]
